FAERS Safety Report 24920991 (Version 1)
Quarter: 2025Q1

REPORT INFORMATION
  Report Type: Spontaneous
  Country: US (occurrence: US)
  Receive Date: 20250204
  Receipt Date: 20250204
  Transmission Date: 20250409
  Serious: No
  Sender: TARO
  Company Number: US-TARO PHARMACEUTICALS USA INC.-2024TAR02821

PATIENT

DRUGS (2)
  1. ADAPALENE [Suspect]
     Active Substance: ADAPALENE
     Indication: Acne
     Dosage: OD IN EVENING EVERY OTHER DAY, PEA SIZE
     Route: 061
     Dates: start: 202409, end: 202410
  2. MENTHOL\ZINC OXIDE [Concomitant]
     Active Substance: MENTHOL\ZINC OXIDE
     Indication: Eczema
     Route: 061

REACTIONS (6)
  - Facial pain [Recovered/Resolved]
  - Rash [Recovered/Resolved]
  - Eye swelling [Recovered/Resolved]
  - Erythema [Recovered/Resolved]
  - Skin irritation [Recovered/Resolved]
  - Skin burning sensation [Recovered/Resolved]

NARRATIVE: CASE EVENT DATE: 20240101
